FAERS Safety Report 4965459-X (Version None)
Quarter: 2006Q1

REPORT INFORMATION
  Report Type: 
  Country: None (occurrence: None)
  Receive Date: 20060201
  Receipt Date: 20051205
  Transmission Date: 20060701
  Serious: No
  Sender: FDA-Public Use
  Company Number: 2005PV005467

PATIENT
  Age: 63 Year
  Sex: Male
  Weight: 96.1626 kg

DRUGS (18)
  1. BYETTA [Suspect]
     Indication: DIABETES MELLITUS NON-INSULIN-DEPENDENT
     Dosage: SEE IMAGE
     Route: 058
     Dates: start: 20050606, end: 20050706
  2. BYETTA [Suspect]
     Indication: DIABETES MELLITUS NON-INSULIN-DEPENDENT
     Dosage: SEE IMAGE
     Route: 058
     Dates: start: 20050706
  3. METFORMIN [Concomitant]
  4. ACTOS [Concomitant]
  5. LANTUS [Concomitant]
  6. HUMALOG [Concomitant]
  7. PLAVIX [Concomitant]
  8. COREG [Concomitant]
  9. LISINOPRIL [Concomitant]
  10. DILACOR XR [Concomitant]
  11. PROTONIX [Concomitant]
  12. BENICAR HCT [Concomitant]
  13. LIPITOR [Concomitant]
  14. LEVOTHYROXINE SODIUM [Concomitant]
  15. ASPIRIN [Concomitant]
  16. NIASPAN [Concomitant]
  17. LEXAPRO [Concomitant]
  18. MULTIVITAMIN [Concomitant]

REACTIONS (4)
  - BLOOD GLUCOSE INCREASED [None]
  - NAUSEA [None]
  - VOMITING [None]
  - WEIGHT DECREASED [None]
